FAERS Safety Report 20430398 (Version 2)
Quarter: 2025Q3

REPORT INFORMATION
  Report Type: Report from Study
  Country: EU (occurrence: EU)
  Receive Date: 20220204
  Receipt Date: 20250728
  Transmission Date: 20251020
  Serious: Yes (Other)
  Sender: SERVIER
  Company Number: EU-SERVIER-S20007044

PATIENT

DRUGS (6)
  1. PEGASPARGASE [Suspect]
     Active Substance: PEGASPARGASE
     Indication: Acute lymphocytic leukaemia
     Route: 042
     Dates: start: 20200316, end: 20200316
  2. VINCRISTINE SULFATE [Suspect]
     Active Substance: VINCRISTINE SULFATE
     Indication: Acute lymphocytic leukaemia
     Route: 042
     Dates: start: 20200313, end: 20200327
  3. DOXORUBICIN HYDROCHLORIDE [Suspect]
     Active Substance: DOXORUBICIN HYDROCHLORIDE
     Indication: Acute lymphocytic leukaemia
     Route: 042
     Dates: start: 20200313, end: 20200327
  4. METHOTREXATE SODIUM [Suspect]
     Active Substance: METHOTREXATE SODIUM
     Indication: Acute lymphocytic leukaemia
     Route: 037
     Dates: start: 20200316, end: 20200416
  5. DEXAMETHASONE [Suspect]
     Active Substance: DEXAMETHASONE
     Indication: Acute lymphocytic leukaemia
     Route: 048
     Dates: start: 20200313, end: 20200326
  6. THIOGUANINE ANHYDROUS [Suspect]
     Active Substance: THIOGUANINE ANHYDROUS
     Indication: Acute lymphocytic leukaemia
     Route: 048
     Dates: start: 20200414, end: 20200427

REACTIONS (1)
  - Catheter site thrombosis [Recovering/Resolving]

NARRATIVE: CASE EVENT DATE: 20200430
